FAERS Safety Report 8405900-3 (Version None)
Quarter: 2012Q1

REPORT INFORMATION
  Report Type: 
  Country: None (occurrence: None)
  Receive Date: 20120323
  Receipt Date: 20110119
  Transmission Date: 20120608
  Serious: Yes (Hospitalization)
  Sender: FDA-Public Use
  Company Number: 163-21880-10123241

PATIENT
  Age: 53 Year
  Sex: Male

DRUGS (7)
  1. CELEXA [Concomitant]
  2. LASIX [Concomitant]
  3. LANTUS [Concomitant]
  4. REVLIMID [Suspect]
     Indication: MULTIPLE MYELOMA
     Dosage: 15 MG, DAILY, PO, 10 MG, 1 IN 1 D, PO
     Route: 048
     Dates: start: 20101001, end: 20101122
  5. REVLIMID [Suspect]
     Indication: MULTIPLE MYELOMA
     Dosage: 15 MG, DAILY, PO, 10 MG, 1 IN 1 D, PO
     Route: 048
     Dates: start: 20110101
  6. PEPCID [Concomitant]
  7. ACYCLOVIR [Concomitant]

REACTIONS (6)
  - ANAEMIA [None]
  - NAUSEA [None]
  - OEDEMA PERIPHERAL [None]
  - PNEUMONIA [None]
  - ASTHENIA [None]
  - GASTROINTESTINAL HAEMORRHAGE [None]
